FAERS Safety Report 25145997 (Version 1)
Quarter: 2025Q2

REPORT INFORMATION
  Report Type: Other
  Country: JP (occurrence: JP)
  Receive Date: 20250401
  Receipt Date: 20250401
  Transmission Date: 20250716
  Serious: Yes (Other)
  Sender: CHANGZHOU PHARMACEUTICAL FACTORY
  Company Number: JP-Changzhou Pharmaceutical Factory-2174031

PATIENT
  Age: 8 Decade
  Sex: Male

DRUGS (3)
  1. ROSUVASTATIN CALCIUM [Suspect]
     Active Substance: ROSUVASTATIN CALCIUM
     Indication: Hyperlipidaemia
  2. NINTEDANIB [Suspect]
     Active Substance: NINTEDANIB
  3. VOGLIBOSE [Concomitant]
     Active Substance: VOGLIBOSE

REACTIONS (1)
  - Colitis microscopic [Not Recovered/Not Resolved]
